FAERS Safety Report 8069974 (Version 9)
Quarter: 2013Q4

REPORT INFORMATION
  Report Type: Spontaneous
  Country: US (occurrence: US)
  Receive Date: 20110804
  Receipt Date: 20131118
  Transmission Date: 20140711
  Serious: Yes (Life-Threatening, Hospitalization, Other)
  Sender: FDA-Public Use
  Company Number: US-ASTRAZENECA-2011SE37115

PATIENT
  Age: 793 Month
  Sex: Male
  Weight: 96.2 kg

DRUGS (10)
  1. NEXIUM [Suspect]
     Indication: BARRETT^S OESOPHAGUS
     Route: 048
     Dates: start: 20101226
  2. NEXIUM [Suspect]
     Indication: GASTROOESOPHAGEAL REFLUX DISEASE
     Route: 048
     Dates: start: 20101226
  3. NEXIUM [Suspect]
     Indication: BARRETT^S OESOPHAGUS
     Route: 048
     Dates: start: 201104
  4. NEXIUM [Suspect]
     Indication: GASTROOESOPHAGEAL REFLUX DISEASE
     Route: 048
     Dates: start: 201104
  5. LYRICA [Concomitant]
     Indication: PAIN
  6. LYRICA [Concomitant]
     Indication: PAIN
     Route: 048
     Dates: start: 201104
  7. LIPITOR [Concomitant]
     Indication: BLOOD CHOLESTEROL INCREASED
     Route: 048
     Dates: start: 1993
  8. CHEMOTHERAPY [Concomitant]
     Indication: BLADDER MASS
     Dosage: 3 MONTHS CONT
     Route: 050
     Dates: start: 2013
  9. AMLODIPINE [Concomitant]
     Indication: HYPERTENSION
     Route: 048
     Dates: start: 1993
  10. FLOVENT [Concomitant]
     Indication: CHRONIC OBSTRUCTIVE PULMONARY DISEASE
     Route: 055
     Dates: start: 201310

REACTIONS (18)
  - Cervical vertebral fracture [Unknown]
  - Fractured coccyx [Unknown]
  - Procedural complication [Unknown]
  - Road traffic accident [Unknown]
  - Neoplasm malignant [Unknown]
  - Lymphoma [Unknown]
  - Prostate cancer [Unknown]
  - Bladder cancer [Recovered/Resolved]
  - Back pain [Unknown]
  - Neck pain [Unknown]
  - Oesophageal pain [Unknown]
  - Therapeutic response unexpected [Unknown]
  - Fall [Not Recovered/Not Resolved]
  - Lung disorder [Not Recovered/Not Resolved]
  - Chronic obstructive pulmonary disease [Unknown]
  - Constipation [Unknown]
  - Off label use [Unknown]
  - Off label use [Unknown]
